FAERS Safety Report 23645396 (Version 1)
Quarter: 2024Q1

REPORT INFORMATION
  Report Type: Report from Study
  Country: FR (occurrence: FR)
  Receive Date: 20240318
  Receipt Date: 20240318
  Transmission Date: 20240409
  Serious: Yes (Hospitalization)
  Sender: FDA-Public Use
  Company Number: FR-ABBVIE-5675867

PATIENT
  Age: 69 Year
  Sex: Female

DRUGS (3)
  1. CARBIDOPA\LEVODOPA [Suspect]
     Active Substance: CARBIDOPA\LEVODOPA
     Indication: Parkinson^s disease
     Route: 050
     Dates: start: 20201211, end: 20240302
  2. CARBIDOPA\LEVODOPA [Suspect]
     Active Substance: CARBIDOPA\LEVODOPA
     Dosage: 2.5 ML/H
     Route: 050
     Dates: start: 202403
  3. CARBIDOPA\LEVODOPA [Suspect]
     Active Substance: CARBIDOPA\LEVODOPA
     Dosage: CONTINUOUS FLOW RATE 3.7ML/H + MORNING DOSE 12ML?END DATE 03/2024
     Route: 050
     Dates: start: 20240302

REACTIONS (9)
  - Gastric perforation [Unknown]
  - Underdose [Unknown]
  - On and off phenomenon [Unknown]
  - Device issue [Unknown]
  - Overdose [Unknown]
  - Dyskinesia [Unknown]
  - Device leakage [Unknown]
  - Asthenia [Unknown]
  - Malnutrition [Unknown]

NARRATIVE: CASE EVENT DATE: 20240301
